FAERS Safety Report 8935413 (Version 1)
Quarter: 2012Q4

REPORT INFORMATION
  Report Type: Spontaneous
  Country: US (occurrence: None)
  Receive Date: 20121128
  Receipt Date: 20121128
  Transmission Date: 20130627
  Serious: Yes (Other)
  Sender: FDA-Public Use
  Company Number: None

PATIENT
  Sex: Male
  Weight: 40.37 kg

DRUGS (2)
  1. METHYLPHENIDATE [Suspect]
     Indication: ADD
  2. METHYLPHENIDATE [Suspect]

REACTIONS (2)
  - Drug effect decreased [None]
  - Product substitution issue [None]
